FAERS Safety Report 15228169 (Version 2)
Quarter: 2018Q3

REPORT INFORMATION
  Report Type: Spontaneous
  Country: CN (occurrence: CN)
  Receive Date: 20180801
  Receipt Date: 20180810
  Transmission Date: 20181010
  Serious: Yes (Other)
  Sender: FDA-Public Use
  Company Number: CN-SA-2018SA165475

PATIENT
  Age: 83 Year
  Sex: Female
  Weight: 57.5 kg

DRUGS (5)
  1. COAPROVEL FILM?COATED TABS 150/12.5 MG [Suspect]
     Active Substance: HYDROCHLOROTHIAZIDE\IRBESARTAN
     Dosage: 1 DF, QD
     Route: 048
     Dates: start: 20180628
  2. CAPTOPRIL. [Suspect]
     Active Substance: CAPTOPRIL
     Dosage: 0.5 DF, QD
     Route: 065
  3. APROVEL [Suspect]
     Active Substance: IRBESARTAN
     Indication: HYPERTENSION
     Dosage: 150 MG, QD
     Route: 048
  4. CAPTOPRIL. [Suspect]
     Active Substance: CAPTOPRIL
     Indication: PRODUCT USED FOR UNKNOWN INDICATION
     Dosage: 1 DF, QD, EVERY AFTERNOON
     Route: 065
  5. COAPROVEL FILM?COATED TABS 150/12.5 MG [Suspect]
     Active Substance: HYDROCHLOROTHIAZIDE\IRBESARTAN
     Indication: HYPERTENSION
     Dosage: 150 MG, QD
     Route: 048
     Dates: start: 201610, end: 201710

REACTIONS (6)
  - Pruritus generalised [Not Recovered/Not Resolved]
  - Myocardial ischaemia [Recovered/Resolved]
  - Malaise [Recovered/Resolved]
  - Blood pressure abnormal [Not Recovered/Not Resolved]
  - Malaise [Recovered/Resolved]
  - Insomnia [Not Recovered/Not Resolved]

NARRATIVE: CASE EVENT DATE: 201610
